FAERS Safety Report 8365800-4 (Version None)
Quarter: 2012Q2

REPORT INFORMATION
  Report Type: 
  Country: None (occurrence: None)
  Receive Date: 20120517
  Receipt Date: 20120505
  Transmission Date: 20120825
  Serious: Yes (Other)
  Sender: FDA-Public Use
  Company Number: NL-PAR PHARMACEUTICAL, INC-2012SCPR004369

PATIENT

DRUGS (4)
  1. ETOPOSIDE [Concomitant]
     Indication: ACUTE MYELOMONOCYTIC LEUKAEMIA
     Dosage: UNK, UNKNOWN
     Route: 065
  2. CYTARABINE [Concomitant]
     Indication: ACUTE MYELOMONOCYTIC LEUKAEMIA
     Dosage: UNK, UNKNOWN
     Route: 065
  3. MITOXANTRONE [Concomitant]
     Indication: ACUTE MYELOMONOCYTIC LEUKAEMIA
     Dosage: UNK, UNKNOWN
     Route: 065
  4. CIPROFLOXACIN EXTENDED RELEASE [Suspect]
     Indication: ANTIBIOTIC PROPHYLAXIS
     Dosage: 500 MG, EVERY 12 HOURS
     Route: 048

REACTIONS (3)
  - TENDON RUPTURE [None]
  - TENDON DISORDER [None]
  - TOXICITY TO VARIOUS AGENTS [None]
